FAERS Safety Report 9642192 (Version 1)
Quarter: 2013Q4

REPORT INFORMATION
  Report Type: Spontaneous
  Country: US (occurrence: US)
  Receive Date: 20131024
  Receipt Date: 20131024
  Transmission Date: 20140711
  Serious: Yes (Other)
  Sender: FDA-Public Use
  Company Number: US-AMGEN-USASP2013074170

PATIENT
  Age: 72 Year
  Sex: Female
  Weight: 90.7 kg

DRUGS (9)
  1. ENBREL [Suspect]
     Indication: PRODUCT USED FOR UNKNOWN INDICATION
     Dosage: 25 MG, 2 TIMES/WK
     Route: 058
     Dates: end: 2013
  2. ZOCOR [Concomitant]
     Dosage: 40 MG, UNK
  3. METHOTREXATE [Concomitant]
     Dosage: 2.5 MG, UNK
  4. FOLIC ACID [Concomitant]
     Dosage: 1 MG, UNK
  5. WELLBUTRIN [Concomitant]
     Dosage: 75 MG, UNK
  6. LEVOTHYROXIN [Concomitant]
     Dosage: 112 MUG, UNK
  7. PLAVIX [Concomitant]
     Dosage: 75 MG, UNK
  8. CELEXA                             /00582602/ [Concomitant]
     Dosage: 40 MG, UNK
  9. AZOR                               /00595201/ [Concomitant]
     Dosage: 10-20 MG

REACTIONS (1)
  - Neoplasm malignant [Unknown]
